FAERS Safety Report 26060790 (Version 1)
Quarter: 2025Q4

REPORT INFORMATION
  Report Type: Report from Study
  Country: US (occurrence: US)
  Receive Date: 20251118
  Receipt Date: 20251118
  Transmission Date: 20260117
  Serious: Yes (Other)
  Sender: ABBVIE
  Company Number: US-ABBVIE-6552777

PATIENT
  Sex: Female

DRUGS (1)
  1. VENCLEXTA [Suspect]
     Active Substance: VENETOCLAX
     Indication: Chronic lymphocytic leukaemia
     Dosage: STRENGTH;100 MG?WITH WATER AND WITH A MEAL AROUND THE SAME TIME EACH DAY
     Route: 048

REACTIONS (1)
  - Pulmonary oedema [Not Recovered/Not Resolved]
